FAERS Safety Report 25473239 (Version 1)
Quarter: 2025Q2

REPORT INFORMATION
  Report Type: Spontaneous
  Country: US (occurrence: None)
  Receive Date: 20250623
  Receipt Date: 20250623
  Transmission Date: 20250716
  Serious: Yes (Other)
  Sender: FDA-CTU
  Company Number: None

PATIENT
  Age: 25 Year
  Sex: Female

DRUGS (5)
  1. XOLAIR [Suspect]
     Active Substance: OMALIZUMAB
     Indication: Urticaria
     Dosage: FREQUENCY : MONTHLY;?
     Route: 058
  2. ALLEGRA ALLERGY [Concomitant]
     Active Substance: FEXOFENADINE HYDROCHLORIDE
  3. TRIAMCINOLONE [Concomitant]
     Active Substance: TRIAMCINOLONE
  4. FLUTICASONE [Concomitant]
     Active Substance: FLUTICASONE
  5. AZELASTINE [Concomitant]
     Active Substance: AZELASTINE

REACTIONS (1)
  - Urticaria [None]

NARRATIVE: CASE EVENT DATE: 20250602
